FAERS Safety Report 7821912-2 (Version None)
Quarter: 2011Q4

REPORT INFORMATION
  Report Type: 
  Country: None (occurrence: None)
  Receive Date: 20111018
  Receipt Date: 20110627
  Transmission Date: 20120403
  Serious: No
  Sender: FDA-Public Use
  Company Number: US-ASTRAZENECA-2011SE38631

PATIENT
  Age: 48 Year
  Sex: Female

DRUGS (7)
  1. SYMBICORT [Suspect]
     Dosage: 160/4.5, PRN
     Route: 055
  2. TAMOXIFEN CITRATE [Concomitant]
  3. SYMBICORT [Suspect]
     Dosage: 160/4.5 ONCE PER DAY
     Route: 055
  4. SPIRIVA [Concomitant]
  5. ALBUTEROL [Concomitant]
  6. SINGULAIR [Concomitant]
  7. DILTIAZEM HCL [Concomitant]

REACTIONS (2)
  - PRURITUS [None]
  - INAPPROPRIATE SCHEDULE OF DRUG ADMINISTRATION [None]
